FAERS Safety Report 19803492 (Version 1)
Quarter: 2021Q3

REPORT INFORMATION
  Report Type: Spontaneous
  Country: US (occurrence: US)
  Receive Date: 20210908
  Receipt Date: 20210908
  Transmission Date: 20211014
  Serious: Yes (Hospitalization, Disabling, Other)
  Sender: FDA-Public Use
  Company Number: US-MYLANLABS-2021M1059772

PATIENT
  Age: 15 Year
  Sex: Male

DRUGS (6)
  1. AMOXICILLIN W/CLAVULANIC ACID [Concomitant]
     Active Substance: AMOXICILLIN\CLAVULANIC ACID
     Indication: ANTIBIOTIC THERAPY
     Dosage: FOR PRESUMED VIRAL?INDUCED REACTIVE AIRWAY DISEASE WITH POSSIBLE SECONDARY BACTERIAL INFECTION
     Route: 065
  2. PREDNISONE. [Suspect]
     Active Substance: PREDNISONE
     Indication: STEROID THERAPY
     Dosage: A 6?DAY PREDNISONE DOSE PACK FOR PRESUMED VIRAL?INDUCED REACTIVE AIRWAY DISEASE?
     Route: 065
  3. DEXAMETHASONE. [Suspect]
     Active Substance: DEXAMETHASONE
     Indication: STEROID THERAPY
     Route: 014
  4. VANCOMYCIN [Suspect]
     Active Substance: VANCOMYCIN
     Indication: EVIDENCE BASED TREATMENT
     Route: 042
  5. PIPERACILLIN/TAZOBACTAM [Suspect]
     Active Substance: PIPERACILLIN SODIUM\TAZOBACTAM SODIUM
     Indication: EVIDENCE BASED TREATMENT
     Route: 042
  6. IBUPROFEN. [Suspect]
     Active Substance: IBUPROFEN
     Indication: ANALGESIC INTERVENTION SUPPORTIVE THERAPY
     Route: 065

REACTIONS (8)
  - Abscess drainage [Recovered/Resolved]
  - Osteonecrosis [Recovered/Resolved]
  - Disseminated blastomycosis [Recovered/Resolved]
  - Osteomyelitis blastomyces [Recovered/Resolved]
  - Oedema [Recovered/Resolved]
  - Blood creatinine increased [Unknown]
  - Subperiosteal abscess [Recovered/Resolved]
  - Arthritis bacterial [Recovered/Resolved]
